FAERS Safety Report 10435006 (Version 1)
Quarter: 2014Q3

REPORT INFORMATION
  Report Type: Spontaneous
  Country: US (occurrence: None)
  Receive Date: 20140815
  Receipt Date: 20140815
  Transmission Date: 20150326
  Serious: No
  Sender: FDA-Public Use
  Company Number: 2014TUS005224

PATIENT
  Age: 77 Year
  Sex: Male
  Weight: 69.4 kg

DRUGS (8)
  1. ALDACTONE [Concomitant]
     Active Substance: SPIRONOLACTONE
  2. BRINTELLIX [Suspect]
     Active Substance: VORTIOXETINE HYDROBROMIDE
     Indication: DEPRESSION
     Route: 048
     Dates: start: 201402
  3. DILANTIN [Concomitant]
     Active Substance: PHENYTOIN
  4. COREG [Concomitant]
     Active Substance: CARVEDILOL
  5. XARELTO [Concomitant]
     Active Substance: RIVAROXABAN
  6. ZOCOR [Concomitant]
     Active Substance: SIMVASTATIN
  7. LANOXIN [Concomitant]
     Active Substance: DIGOXIN
  8. LASIX [Concomitant]
     Active Substance: FUROSEMIDE

REACTIONS (1)
  - Gynaecomastia [None]

NARRATIVE: CASE EVENT DATE: 20140603
